FAERS Safety Report 7264700-0 (Version None)
Quarter: 2011Q1

REPORT INFORMATION
  Report Type: 
  Country: None (occurrence: None)
  Receive Date: 20110131
  Receipt Date: 20110124
  Transmission Date: 20110831
  Serious: Yes (Other)
  Sender: FDA-Public Use
  Company Number: CA-PFIZER INC-2010134586

PATIENT
  Age: 57 Year
  Sex: Male

DRUGS (6)
  1. ELAVIL [Concomitant]
     Dosage: 25 MG, UNK
  2. OMEPRAZOLE [Concomitant]
     Dosage: 20 MG, UNK
  3. LYRICA [Suspect]
     Indication: NEURALGIA
     Dosage: 75 MG, 2X/DAY
     Dates: start: 20100404, end: 20100101
  4. CELEBREX [Concomitant]
     Dosage: 200 MG, UNK
  5. LYRICA [Suspect]
     Dosage: 300 MG, 2X/DAY
     Dates: start: 20100928
  6. ZOPLICONE [Concomitant]
     Dosage: 7.5 MG, UNK

REACTIONS (4)
  - MYOFASCIAL PAIN SYNDROME [None]
  - CERVICOBRACHIAL SYNDROME [None]
  - SPINAL OSTEOARTHRITIS [None]
  - RASH [None]
